FAERS Safety Report 5097407-9 (Version None)
Quarter: 2006Q3

REPORT INFORMATION
  Report Type: 
  Country: None (occurrence: None)
  Receive Date: 20060901
  Receipt Date: 20060816
  Transmission Date: 20061208
  Serious: Yes (Other)
  Sender: FDA-Public Use
  Company Number: 2006RR-03523

PATIENT
  Age: 71 Year
  Sex: Male

DRUGS (2)
  1. SIMVASTATIN [Suspect]
     Indication: HYPERCHOLESTEROLAEMIA
     Dosage: 10 MG, QD, ORAL
     Route: 048
     Dates: start: 20020910, end: 20060322
  2. DOTHIEPIN HYDROCHLORIDE [Concomitant]

REACTIONS (4)
  - AMNESIA [None]
  - CEREBROVASCULAR DISORDER [None]
  - ELECTROENCEPHALOGRAM ABNORMAL [None]
  - GLOBAL AMNESIA [None]
